FAERS Safety Report 24985099 (Version 1)
Quarter: 2025Q1

REPORT INFORMATION
  Report Type: Spontaneous
  Country: US (occurrence: US)
  Receive Date: 20250219
  Receipt Date: 20250219
  Transmission Date: 20250408
  Serious: No
  Sender: PADAGIS
  Company Number: US-PADAGIS-2025PAD00170

PATIENT

DRUGS (7)
  1. IMIQUIMOD [Suspect]
     Active Substance: IMIQUIMOD
     Indication: Vitiligo
     Route: 065
  2. DESONIDE [Suspect]
     Active Substance: DESONIDE
     Indication: Vitiligo
     Route: 065
  3. BETAMETHASONE DIPROPIONATE\CALCIPOTRIENE [Suspect]
     Active Substance: BETAMETHASONE DIPROPIONATE\CALCIPOTRIENE
     Indication: Vitiligo
     Route: 065
  4. CLOBETASOL [Suspect]
     Active Substance: CLOBETASOL
     Indication: Vitiligo
     Route: 065
  5. CLOBETASOL [Suspect]
     Active Substance: CLOBETASOL
     Route: 065
  6. CLOBETASOL [Suspect]
     Active Substance: CLOBETASOL
     Route: 065
  7. RUXOLITINIB [Suspect]
     Active Substance: RUXOLITINIB
     Indication: Vitiligo
     Route: 065

REACTIONS (3)
  - Drug ineffective [Unknown]
  - Therapy partial responder [Unknown]
  - Product use in unapproved indication [Unknown]
